FAERS Safety Report 10088747 (Version 1)
Quarter: 2014Q2

REPORT INFORMATION
  Report Type: Spontaneous
  Country: US (occurrence: US)
  Receive Date: 20140421
  Receipt Date: 20140421
  Transmission Date: 20141212
  Serious: No
  Sender: FDA-Public Use
  Company Number: US-BIOGENIDEC-2014BI033673

PATIENT
  Sex: Female

DRUGS (2)
  1. TECFIDERA [Suspect]
     Indication: MULTIPLE SCLEROSIS
  2. AUBAGIO [Concomitant]

REACTIONS (7)
  - Decreased appetite [Unknown]
  - Swelling [Unknown]
  - Urticaria [Unknown]
  - Rash generalised [Unknown]
  - Feeling hot [Unknown]
  - Vomiting [Unknown]
  - Diarrhoea [Unknown]
